FAERS Safety Report 20019079 (Version 1)
Quarter: 2021Q4

REPORT INFORMATION
  Report Type: Spontaneous
  Country: DE (occurrence: DE)
  Receive Date: 20211101
  Receipt Date: 20211101
  Transmission Date: 20220303
  Serious: Yes (Other)
  Sender: FDA-Public Use
  Company Number: DE-PFIZER INC-2021906915

PATIENT
  Age: 54 Year
  Sex: Male

DRUGS (2)
  1. FLUOROURACIL [Suspect]
     Active Substance: FLUOROURACIL
     Indication: Anal squamous cell carcinoma
     Dosage: 1000 MILLIGRAM/SQ. METER, CYCLE (1000 MG/M2, ON DAY 1-3 ICYCLE, ON DAY 1-2 CYCLE 2)
     Route: 042
  2. MITOMYCIN [Suspect]
     Active Substance: MITOMYCIN
     Indication: Anal squamous cell carcinoma
     Dosage: 10 MILLIGRAM/SQ. METER, CYCLE (10 MG/M2, ON DAY 1, 2 CYCLES)
     Route: 042

REACTIONS (2)
  - Cardiotoxicity [Unknown]
  - Skin exfoliation [Unknown]
